FAERS Safety Report 7355294-X (Version None)
Quarter: 2011Q1

REPORT INFORMATION
  Report Type: 
  Country: None (occurrence: None)
  Receive Date: 20110316
  Receipt Date: 20110311
  Transmission Date: 20110831
  Serious: Yes (Other)
  Sender: FDA-Public Use
  Company Number: US-PFIZER INC-2011055354

PATIENT
  Sex: Male

DRUGS (15)
  1. DEXAMETHASONE [Concomitant]
     Dosage: 20 MG, WEEKLY
     Dates: start: 20100501
  2. HYDRALAZINE [Concomitant]
     Dosage: 10 MG, EVERY 8 HRS
  3. REVLIMID [Suspect]
     Indication: AMYLOIDOSIS
     Dosage: 10 MG, 1X/DAY
     Route: 048
     Dates: start: 20110101
  4. ZOLOFT [Concomitant]
     Dosage: 50 MG, 1X/DAY
  5. DIFLUCAN [Suspect]
     Dosage: 400 MG, 1X/DAY
     Route: 065
     Dates: start: 20100501
  6. COUMADIN [Suspect]
     Dosage: 2 MG, UNK
     Route: 065
  7. COREG [Concomitant]
     Dosage: 12.5 MG, 2X/DAY
  8. XANAX [Concomitant]
     Dosage: 0.25 MG, 1/2 - 1 3X/DAY OR AS NEEDED
  9. CRESTOR [Concomitant]
     Dosage: 20 MG, BED TIME
  10. COUMADIN [Suspect]
     Dosage: 2.5 MG, UNK
     Route: 065
     Dates: end: 20110227
  11. LASIX [Concomitant]
     Dosage: 40 MG, 1X/DAY
  12. CARDURA [Concomitant]
     Dosage: 8 MG, BED TIME
  13. REVLIMID [Suspect]
     Dosage: 15 MG, 1X/DAY
     Route: 048
     Dates: start: 20110201, end: 20110224
  14. COLACE [Concomitant]
     Dosage: 1 DF, 1X/DAY
  15. PHOSLO [Concomitant]
     Dosage: 667 MG, WITH NOON AND EVENING MEAL

REACTIONS (1)
  - PLATELET COUNT DECREASED [None]
